FAERS Safety Report 18839874 (Version 1)
Quarter: 2021Q1

REPORT INFORMATION
  Report Type: Report from Study
  Country: US (occurrence: US)
  Receive Date: 20210204
  Receipt Date: 20210204
  Transmission Date: 20210419
  Serious: No
  Sender: FDA-Public Use
  Company Number: US-EXELIXIS-CABO-20032614

PATIENT
  Sex: Male

DRUGS (2)
  1. CABOMETYX [Suspect]
     Active Substance: CABOZANTINIB S-MALATE
     Dosage: 40 MG, QD FOR 2 WEEKS AND THEN 1 WEEK OFF
     Route: 048
  2. CABOMETYX [Suspect]
     Active Substance: CABOZANTINIB S-MALATE
     Indication: RENAL CANCER
     Dosage: 40 MG, QD
     Route: 048
     Dates: start: 20200619

REACTIONS (12)
  - Blister [Unknown]
  - Alopecia [Unknown]
  - Adverse drug reaction [Unknown]
  - Nausea [Unknown]
  - Epistaxis [Unknown]
  - Malignant neoplasm progression [Unknown]
  - Abdominal pain upper [Unknown]
  - Inappropriate schedule of product administration [Unknown]
  - Constipation [Unknown]
  - Diarrhoea [Unknown]
  - Muscle spasms [Unknown]
  - Fatigue [Unknown]
